FAERS Safety Report 8455808-2 (Version None)
Quarter: 2012Q2

REPORT INFORMATION
  Report Type: 
  Country: None (occurrence: None)
  Receive Date: 20120621
  Receipt Date: 20111007
  Transmission Date: 20120825
  Serious: Yes (Hospitalization)
  Sender: FDA-Public Use
  Company Number: DE-UCBSA-025861

PATIENT
  Age: 79 Year
  Sex: Female
  Weight: 65 kg

DRUGS (7)
  1. CORTISONE ACETATE [Concomitant]
     Dates: start: 20101207
  2. CARBAMAZEPINE [Concomitant]
  3. PANTOPRAZOLE [Concomitant]
  4. IBUPROFEN [Concomitant]
     Dosage: FREQUENCY: 3/2 PER DAY. DAILY DOSE: 180 MG/1200 MG
  5. ACETAMINOPHEN [Concomitant]
  6. PREDNISOLONE [Concomitant]
  7. VIMPAT [Suspect]
     Indication: EPILEPSY
     Dates: start: 20101207, end: 20110308

REACTIONS (5)
  - FOREARM FRACTURE [None]
  - GRAND MAL CONVULSION [None]
  - SYNCOPE [None]
  - CONCUSSION [None]
  - GAIT DISTURBANCE [None]
